FAERS Safety Report 7859955-5 (Version None)
Quarter: 2011Q4

REPORT INFORMATION
  Report Type: 
  Country: None (occurrence: None)
  Receive Date: 20111026
  Receipt Date: 20111026
  Transmission Date: 20120403
  Serious: Yes (Other)
  Sender: FDA-Public Use
  Company Number: None

PATIENT
  Sex: Female

DRUGS (1)
  1. ENBREL [Suspect]
     Dosage: 50MG EVERY WEEK SQ
     Route: 058
     Dates: start: 20080114, end: 20111019

REACTIONS (4)
  - MALAISE [None]
  - INCORRECT PRODUCT STORAGE [None]
  - AGITATION [None]
  - RESTLESSNESS [None]
